FAERS Safety Report 10413112 (Version 1)
Quarter: 2014Q3

REPORT INFORMATION
  Report Type: Spontaneous
  Country: CH (occurrence: CH)
  Receive Date: 20140827
  Receipt Date: 20140827
  Transmission Date: 20150326
  Serious: Yes (Other)
  Sender: FDA-Public Use
  Company Number: CH-GLAXOSMITHKLINE-B1027263A

PATIENT
  Age: 65 Year
  Sex: Female

DRUGS (11)
  1. BENLYSTA [Suspect]
     Active Substance: BELIMUMAB
     Indication: UNDIFFERENTIATED CONNECTIVE TISSUE DISEASE
     Route: 042
     Dates: start: 20140131, end: 20140505
  2. PLAVIX [Suspect]
     Active Substance: CLOPIDOGREL BISULFATE
     Indication: ISCHAEMIC CEREBRAL INFARCTION
     Dosage: 75MG PER DAY
     Route: 048
  3. RIVOTRIL [Concomitant]
     Active Substance: CLONAZEPAM
     Indication: NEURALGIA
     Dosage: 20DROP PER DAY
     Route: 048
  4. MST CONTINUS [Concomitant]
     Active Substance: MORPHINE SULFATE
     Indication: ARTHRALGIA
     Dosage: 10MG PER DAY
     Route: 048
  5. ARAVA [Concomitant]
     Active Substance: LEFLUNOMIDE
     Dosage: 20MG PER DAY
     Route: 048
  6. TEMESTA [Concomitant]
     Active Substance: LORAZEPAM
     Dosage: 2.5MG PER DAY
     Route: 048
  7. KAPANOL [Concomitant]
     Indication: ARTHRALGIA
     Dosage: 20MG PER DAY
     Route: 048
  8. PANTOPRAZOLE [Concomitant]
     Active Substance: PANTOPRAZOLE SODIUM
     Dosage: 40MG PER DAY
     Route: 048
  9. IRFEN [Suspect]
     Active Substance: IBUPROFEN
     Indication: ARTHRALGIA
     Dosage: 800MG TWICE PER DAY
     Route: 048
     Dates: end: 20140520
  10. COAPROVEL [Concomitant]
     Active Substance: HYDROCHLOROTHIAZIDE\IRBESARTAN
     Indication: ESSENTIAL HYPERTENSION
     Dosage: 300MG PER DAY
     Route: 048
  11. NEURONTIN [Concomitant]
     Active Substance: GABAPENTIN
     Indication: NEURALGIA
     Dosage: 300MG PER DAY
     Route: 048

REACTIONS (2)
  - Spontaneous haematoma [Recovered/Resolved]
  - Condition aggravated [Unknown]

NARRATIVE: CASE EVENT DATE: 201402
